FAERS Safety Report 7910037-3 (Version None)
Quarter: 2011Q4

REPORT INFORMATION
  Report Type: 
  Country: None (occurrence: None)
  Receive Date: 20111111
  Receipt Date: 20111026
  Transmission Date: 20120403
  Serious: Yes (Hospitalization)
  Sender: FDA-Public Use
  Company Number: JP-ROCHE-1002424

PATIENT
  Sex: Female
  Weight: 45 kg

DRUGS (8)
  1. MONTELUKAST SODIUM [Concomitant]
     Dates: start: 20100414
  2. THEOLONG [Concomitant]
     Dates: start: 20100414
  3. TOWARAT-L [Concomitant]
     Dates: start: 20100414
  4. CEPHADOL [Concomitant]
     Dates: start: 20100414
  5. PREDNISOLONE [Concomitant]
     Dates: start: 20100414
  6. ADOAIR [Concomitant]
     Dates: start: 20100414
  7. OMALIZUMAB [Suspect]
     Indication: ASTHMA
     Route: 058
     Dates: start: 20101013
  8. PITAVASTATIN CALCIUM [Concomitant]
     Dates: start: 20100414

REACTIONS (2)
  - DRUG INEFFECTIVE [None]
  - ASTHMA [None]
